FAERS Safety Report 8447935-0 (Version None)
Quarter: 2012Q2

REPORT INFORMATION
  Report Type: 
  Country: None (occurrence: None)
  Receive Date: 20120619
  Receipt Date: 20120613
  Transmission Date: 20120825
  Serious: Yes (Other)
  Sender: FDA-Public Use
  Company Number: PHHY2012SA050734

PATIENT
  Age: 12 Year
  Sex: Male

DRUGS (1)
  1. SANDOSTATIN [Suspect]
     Indication: CONGENITAL HEPATIC FIBROSIS
     Dosage: 2 PG/KG/H
     Route: 042

REACTIONS (2)
  - NO THERAPEUTIC RESPONSE [None]
  - OESOPHAGEAL VARICES HAEMORRHAGE [None]
